FAERS Safety Report 7783920-X (Version None)
Quarter: 2011Q3

REPORT INFORMATION
  Report Type: 
  Country: None (occurrence: None)
  Receive Date: 20110928
  Receipt Date: 20110926
  Transmission Date: 20111222
  Serious: Yes (Congenital Anomaly, Other)
  Sender: FDA-Public Use
  Company Number: DE-GLAXOSMITHKLINE-D0072840A

PATIENT
  Sex: Female
  Weight: 2.8 kg

DRUGS (4)
  1. FOLIC ACID [Suspect]
     Indication: PROPHYLAXIS OF NEURAL TUBE DEFECT
     Dosage: 5MG PER DAY
     Route: 064
     Dates: start: 20100910
  2. LEVONORGESTREL AND ETHINYL ESTRADIOL [Suspect]
     Indication: CONTRACEPTION
     Route: 064
     Dates: start: 20100731, end: 20100908
  3. LAMICTAL [Suspect]
     Indication: EPILEPSY
     Route: 064
     Dates: start: 20100731, end: 20110501
  4. VALPROIC ACID [Suspect]
     Indication: EPILEPSY
     Route: 064
     Dates: start: 20100731, end: 20110501

REACTIONS (6)
  - SMALL FOR DATES BABY [None]
  - PYELOCALIECTASIS [None]
  - MATERNAL EXPOSURE DURING PREGNANCY [None]
  - HEAD DEFORMITY [None]
  - FOETAL GROWTH RESTRICTION [None]
  - URINARY TRACT MALFORMATION [None]
